FAERS Safety Report 16741386 (Version 3)
Quarter: 2019Q4

REPORT INFORMATION
  Report Type: Spontaneous
  Country: US (occurrence: US)
  Receive Date: 20190826
  Receipt Date: 20191126
  Transmission Date: 20200122
  Serious: Yes (Other)
  Sender: FDA-Public Use
  Company Number: US-BAYER-2019-155785

PATIENT
  Age: 22 Year
  Sex: Male

DRUGS (6)
  1. KOGENATE FS [Suspect]
     Active Substance: ANTIHEMOPHILIC FACTOR, HUMAN RECOMBINANT
     Indication: HAEMOPHILIA
     Dosage: 1950 U, PRN
     Route: 042
     Dates: start: 20190702
  2. HEMLIBRA [Concomitant]
     Active Substance: EMICIZUMAB-KXWH
     Dosage: SCHEDULED DOSES
  3. KOGENATE FS [Suspect]
     Active Substance: ANTIHEMOPHILIC FACTOR, HUMAN RECOMBINANT
     Indication: HAEMOPHILIA
     Dosage: 1800 - 2100 UNITS 2-3 TIMES WEEKLY
     Route: 042
     Dates: start: 20090522
  4. KOGENATE FS [Suspect]
     Active Substance: ANTIHEMOPHILIC FACTOR, HUMAN RECOMBINANT
     Indication: FACTOR VIII DEFICIENCY
     Dosage: 2087 U, TIW
     Route: 042
     Dates: start: 20190702
  5. KOGENATE FS [Suspect]
     Active Substance: ANTIHEMOPHILIC FACTOR, HUMAN RECOMBINANT
     Indication: HAEMOPHILIA
     Dosage: 1950 U, TIW
     Route: 042
     Dates: start: 20190702
  6. KOGENATE FS [Suspect]
     Active Substance: ANTIHEMOPHILIC FACTOR, HUMAN RECOMBINANT
     Indication: METRORRHAGIA
     Dosage: 2111 U, TIW
     Route: 042
     Dates: start: 20190702

REACTIONS (1)
  - Haemarthrosis [None]
